FAERS Safety Report 8842662 (Version 2)
Quarter: 2012Q4

REPORT INFORMATION
  Report Type: 
  Country: US (occurrence: US)
  Receive Date: 20121016
  Receipt Date: 20121119
  Transmission Date: 20130627
  Serious: No
  Sender: FDA-Public Use
  Company Number: US-ROXANE LABORATORIES, INC.-2012-RO-01961RO

PATIENT
  Sex: Female
  Weight: 60 kg

DRUGS (7)
  1. LOSARTAN POTASSIUM USP [Suspect]
     Indication: HYPERTENSION
     Dosage: 50 mg
     Route: 048
     Dates: start: 2004, end: 20121001
  2. METOPROLOL ER [Concomitant]
     Indication: HYPERTENSION
     Dosage: 100 mg
  3. BABY ASPIRIN [Concomitant]
     Dosage: 80 mg
  4. CALCIUM CITRATE WITH VITAMIN D [Concomitant]
     Indication: OSTEOPENIA
  5. FISH OIL [Concomitant]
     Dosage: 1200 mg
  6. MULTIVITAMIN [Concomitant]
  7. ARBONNE ESSENTIAL PROLIEF [Concomitant]

REACTIONS (3)
  - Dermatitis atopic [Not Recovered/Not Resolved]
  - Rhinorrhoea [Not Recovered/Not Resolved]
  - Dry mouth [Not Recovered/Not Resolved]
